FAERS Safety Report 13045925 (Version 8)
Quarter: 2019Q2

REPORT INFORMATION
  Report Type: Report from Study
  Country: US (occurrence: US)
  Receive Date: 20161220
  Receipt Date: 20190531
  Transmission Date: 20190711
  Serious: Yes (Other)
  Sender: FDA-Public Use
  Company Number: US-UCBSA-2016048041

PATIENT
  Age: 66 Year
  Sex: Female
  Weight: 73 kg

DRUGS (6)
  1. LEVETIRACETAM. [Suspect]
     Active Substance: LEVETIRACETAM
     Indication: BRAIN OPERATION
     Dosage: 250 MILLIGRAM, 2X/DAY (BID)
     Route: 048
     Dates: start: 20161209
  2. LEVETIRACETAM. [Suspect]
     Active Substance: LEVETIRACETAM
     Indication: EPILEPSY
  3. LACTATED RINGERS SOLUTION [Concomitant]
     Active Substance: CALCIUM CHLORIDE\POTASSIUM CHLORIDE\SODIUM CHLORIDE\SODIUM LACTATE
     Indication: BACK PAIN
     Dosage: UNK
  4. FUROSEMIDE. [Concomitant]
     Active Substance: FUROSEMIDE
     Indication: PRODUCT USED FOR UNKNOWN INDICATION
     Dosage: UNK
  5. LEVETIRACETAM. [Suspect]
     Active Substance: LEVETIRACETAM
     Indication: GENERALISED TONIC-CLONIC SEIZURE
     Dosage: 500 MG, 2X/DAY (BID)
     Route: 048
     Dates: start: 20070318
  6. LEVETIRACETAM. [Suspect]
     Active Substance: LEVETIRACETAM
     Indication: GENERALISED TONIC-CLONIC SEIZURE
     Dosage: 500 MG, ONCE DAILY (QD)
     Route: 048
     Dates: start: 201603, end: 2016

REACTIONS (11)
  - Muscular weakness [Not Recovered/Not Resolved]
  - Disturbance in attention [Unknown]
  - Somnolence [Unknown]
  - Back pain [Recovering/Resolving]
  - Trigger finger [Unknown]
  - Fatigue [Unknown]
  - Incorrect dose administered [Unknown]
  - Memory impairment [Unknown]
  - Muscle spasms [Recovered/Resolved]
  - Osteoarthritis [Not Recovered/Not Resolved]
  - Osteopenia [Not Recovered/Not Resolved]

NARRATIVE: CASE EVENT DATE: 201005
